FAERS Safety Report 7568289-8 (Version None)
Quarter: 2011Q2

REPORT INFORMATION
  Report Type: 
  Country: None (occurrence: None)
  Receive Date: 20110617
  Receipt Date: 20110602
  Transmission Date: 20111010
  Serious: Yes (Other)
  Sender: FDA-Public Use
  Company Number: 2011-00617

PATIENT
  Age: 8 Year
  Sex: Male

DRUGS (1)
  1. SUPRAX [Suspect]
     Indication: PHARYNGITIS STREPTOCOCCAL

REACTIONS (6)
  - ABDOMINAL PAIN [None]
  - VOMITING [None]
  - DIARRHOEA [None]
  - ABDOMINAL DISCOMFORT [None]
  - LYMPHADENITIS [None]
  - RASH [None]
